FAERS Safety Report 5371345-6 (Version None)
Quarter: 2007Q2

REPORT INFORMATION
  Report Type: 
  Country: None (occurrence: None)
  Receive Date: 20070615
  Receipt Date: 20061215
  Transmission Date: 20071010
  Serious: Yes (Other)
  Sender: FDA-Public Use
  Company Number: 200615889US

PATIENT
  Age: 74 Year
  Sex: Female
  Weight: 91 kg

DRUGS (9)
  1. LANTUS [Suspect]
     Indication: DIABETES MELLITUS NON-INSULIN-DEPENDENT
     Dosage: 20 U AM+PM
  2. OPTICLIK [Suspect]
     Indication: DIABETES MELLITUS NON-INSULIN-DEPENDENT
     Dates: start: 20060709
  3. METFORMIN HCL [Concomitant]
  4. LISINOPRIL [Concomitant]
  5. SYNTHROID [Concomitant]
  6. HUMALOG [Concomitant]
  7. NAPROXEN SODIUM (ALEVE) [Concomitant]
  8. CALCIUM CARBONATE (CALTRATE) [Concomitant]
  9. VITAMINS NOS, MINERALS NOS (CENTRUM) [Concomitant]

REACTIONS (1)
  - HYPERGLYCAEMIA [None]
